FAERS Safety Report 25401305 (Version 1)
Quarter: 2025Q2

REPORT INFORMATION
  Report Type: Spontaneous
  Country: US (occurrence: None)
  Receive Date: 20250604
  Receipt Date: 20250604
  Transmission Date: 20250716
  Serious: Yes (Hospitalization)
  Sender: FDA-CTU
  Company Number: None

PATIENT
  Age: 66 Year
  Sex: Male
  Weight: 55.1 kg

DRUGS (1)
  1. PADCEV [Suspect]
     Active Substance: ENFORTUMAB VEDOTIN-EJFV
     Indication: Penile squamous cell carcinoma
     Dosage: FREQUENCY : 3 TIMES A DAY;?
     Route: 041
     Dates: start: 20250307, end: 20250314

REACTIONS (12)
  - Infusion related reaction [None]
  - Back pain [None]
  - Cough [None]
  - Gait disturbance [None]
  - Cachexia [None]
  - Leukocytosis [None]
  - Anaemia [None]
  - Hyponatraemia [None]
  - Hypoalbuminaemia [None]
  - Compression fracture [None]
  - Blood alkaline phosphatase increased [None]
  - Metastases to lung [None]

NARRATIVE: CASE EVENT DATE: 20250317
